FAERS Safety Report 22027150 (Version 1)
Quarter: 2023Q1

REPORT INFORMATION
  Report Type: Spontaneous
  Country: US (occurrence: US)
  Receive Date: 20230223
  Receipt Date: 20230223
  Transmission Date: 20230418
  Serious: Yes (Other)
  Sender: FDA-Public Use
  Company Number: US-002147023-NVSC2023US038541

PATIENT
  Sex: Female
  Weight: 80 kg

DRUGS (1)
  1. KYMRIAH [Suspect]
     Active Substance: TISAGENLECLEUCEL
     Indication: Acute lymphocytic leukaemia
     Dosage: 1.4X10E8 CAR POSITIVE VIABLE T CELLS, ONCE/SINGLE
     Route: 042

REACTIONS (1)
  - Post-depletion B-cell recovery [Unknown]
